FAERS Safety Report 13780255 (Version 1)
Quarter: 2017Q3

REPORT INFORMATION
  Report Type: Spontaneous
  Country: US (occurrence: US)
  Receive Date: 20170724
  Receipt Date: 20170724
  Transmission Date: 20171127
  Serious: No
  Sender: FDA-Public Use
  Company Number: US-TEVA-789677ACC

PATIENT
  Sex: Female

DRUGS (1)
  1. TAKE ACTION [Suspect]
     Active Substance: LEVONORGESTREL
     Indication: POST COITAL CONTRACEPTION
     Route: 065

REACTIONS (3)
  - Back pain [Not Recovered/Not Resolved]
  - Menstruation delayed [Not Recovered/Not Resolved]
  - Vaginal haemorrhage [Recovered/Resolved]
